FAERS Safety Report 16703579 (Version 2)
Quarter: 2019Q3

REPORT INFORMATION
  Report Type: Spontaneous
  Country: US (occurrence: US)
  Receive Date: 20190814
  Receipt Date: 20190910
  Transmission Date: 20191004
  Serious: No
  Sender: FDA-Public Use
  Company Number: US-009507513-1908USA002450

PATIENT
  Age: 31 Year
  Sex: Female
  Weight: 84.44 kg

DRUGS (5)
  1. NEXPLANON [Suspect]
     Active Substance: ETONOGESTREL
     Dosage: 1 ROD
     Route: 059
     Dates: start: 2012, end: 20190622
  2. ANTIPYRINE (+) BENZOCAINE [Concomitant]
     Dosage: OTIC, 3 TIMES EVERY DAY, ENOUGH DROPS TO FILL EAR CANAL
     Route: 001
  3. CLOTRIMAZOLE. [Concomitant]
     Active Substance: CLOTRIMAZOLE
     Dosage: APPLY 2 TIMES EVERY DAY  TO BOTH EARS X 7 DAYS
     Route: 061
  4. AMOXICILLIN. [Concomitant]
     Active Substance: AMOXICILLIN
     Dosage: 1 TABLET EVERY 8 HOURS
     Route: 048
  5. COLACE [Concomitant]
     Active Substance: DOCUSATE SODIUM

REACTIONS (3)
  - Incorrect product administration duration [Unknown]
  - Metrorrhagia [Unknown]
  - Maternal exposure before pregnancy [Unknown]

NARRATIVE: CASE EVENT DATE: 20190619
